FAERS Safety Report 9913139 (Version 3)
Quarter: 2014Q2

REPORT INFORMATION
  Report Type: Spontaneous
  Country: GB (occurrence: None)
  Receive Date: 20140214
  Receipt Date: 20140422
  Transmission Date: 20141212
  Serious: Yes (Hospitalization, Disabling)
  Sender: FDA-Public Use
  Company Number: 2178323

PATIENT
  Age: 60 Year
  Sex: Female
  Weight: 78.46 kg

DRUGS (7)
  1. EPIRUBICIN HYDROCHLORIDE [Suspect]
     Indication: BREAST CANCER FEMALE
     Dosage: 1 WEEK
     Route: 051
     Dates: start: 200006, end: 200010
  2. FLUOROURACIL [Suspect]
     Indication: BREAST CANCER FEMALE
     Dosage: 1 WEEK
     Route: 051
     Dates: start: 200006, end: 200010
  3. CYCLOPHOSPHAMIDE [Suspect]
     Indication: BREAST CANCER FEMALE
     Dosage: 1 WEEK
     Route: 051
     Dates: start: 200006, end: 200010
  4. OXYCODONE HYDROCHLORIDE [Concomitant]
  5. CALCIUM CARBONATE [Concomitant]
  6. TERIPARATIDE [Concomitant]
  7. KETAMINE [Concomitant]

REACTIONS (3)
  - Spinal fracture [None]
  - Osteopenia [None]
  - Pain [None]
